FAERS Safety Report 18196045 (Version 1)
Quarter: 2020Q3

REPORT INFORMATION
  Report Type: Spontaneous
  Country: FR (occurrence: FR)
  Receive Date: 20200826
  Receipt Date: 20200826
  Transmission Date: 20201103
  Serious: Yes (Hospitalization, Other)
  Sender: FDA-Public Use
  Company Number: FR-SUN PHARMACEUTICAL INDUSTRIES LTD-2020R1-256773

PATIENT
  Age: 66 Year
  Sex: Male

DRUGS (5)
  1. OXALIPLATIN. [Suspect]
     Active Substance: OXALIPLATIN
     Dosage: 100 UNK
     Route: 065
     Dates: start: 20180629
  2. METHYLPREDNISOLONE. [Suspect]
     Active Substance: METHYLPREDNISOLONE
     Indication: PRODUCT USED FOR UNKNOWN INDICATION
     Dosage: 120 MILLIGRAM
     Route: 065
     Dates: start: 20180604
  3. OXALIPLATIN. [Suspect]
     Active Substance: OXALIPLATIN
     Indication: COLORECTAL CANCER METASTATIC
     Dosage: 85 MILLIGRAM/SQ. METER
     Route: 065
  4. METHYLPREDNISOLONE. [Suspect]
     Active Substance: METHYLPREDNISOLONE
     Dosage: 120 MILLIGRAM
     Route: 065
     Dates: start: 20180629
  5. OXALIPLATIN. [Suspect]
     Active Substance: OXALIPLATIN
     Dosage: 100 UNK
     Route: 013
     Dates: start: 20180604

REACTIONS (2)
  - Monocytopenia [Unknown]
  - Thrombocytopenia [Unknown]
